FAERS Safety Report 13109541 (Version 1)
Quarter: 2017Q1

REPORT INFORMATION
  Report Type: Spontaneous
  Country: US (occurrence: US)
  Receive Date: 20170112
  Receipt Date: 20170112
  Transmission Date: 20170428
  Serious: Yes (Other)
  Sender: FDA-Public Use
  Company Number: US-PFIZER INC-2016477132

PATIENT
  Sex: Female

DRUGS (1)
  1. ANBESOL MAXIMUM STRENGTH [Suspect]
     Active Substance: BENZOCAINE
     Indication: TOOTHACHE
     Dosage: UNK

REACTIONS (10)
  - Macular degeneration [Unknown]
  - Trigger finger [Unknown]
  - Arthritis [Unknown]
  - Tremor [Unknown]
  - Hypoaesthesia oral [Unknown]
  - Dupuytren^s contracture [Unknown]
  - Drug ineffective [Unknown]
  - Tongue discomfort [Unknown]
  - Blindness [Unknown]
  - Hypoaesthesia [Unknown]
